FAERS Safety Report 17815448 (Version 1)
Quarter: 2020Q2

REPORT INFORMATION
  Report Type: Spontaneous
  Country: US (occurrence: US)
  Receive Date: 20200521
  Receipt Date: 20200521
  Transmission Date: 20200714
  Serious: No
  Sender: FDA-Public Use
  Company Number: None

PATIENT
  Age: 56 Year
  Sex: Male

DRUGS (17)
  1. ESOMEPRA MAG [Concomitant]
  2. LEVOFLOXACIN. [Concomitant]
     Active Substance: LEVOFLOXACIN
  3. VIRTUSSIN AC [Concomitant]
     Active Substance: CODEINE PHOSPHATE\GUAIFENESIN
  4. VITAMIN D3 [Concomitant]
     Active Substance: CHOLECALCIFEROL
  5. MELATONIN [Concomitant]
     Active Substance: MELATONIN
  6. PRASUGREL. [Concomitant]
     Active Substance: PRASUGREL
  7. SILTUSSIN SA [Concomitant]
     Active Substance: GUAIFENESIN
  8. ASPIRIN. [Concomitant]
     Active Substance: ASPIRIN
  9. METOPROL TAR [Concomitant]
  10. EFFER-K [Concomitant]
  11. EZETIMBE [Concomitant]
     Active Substance: EZETIMIBE
  12. SODIUM BICAR [Concomitant]
  13. TAMSULOSIN [Concomitant]
     Active Substance: TAMSULOSIN
  14. REPATHA [Suspect]
     Active Substance: EVOLOCUMAB
     Dosage: ?          OTHER DOSE:1 PEN;?
     Route: 058
     Dates: start: 20200402
  15. BUDES/FORMOT AER [Concomitant]
  16. DOK [Concomitant]
     Active Substance: DOCUSATE SODIUM
  17. PANTOPRAZOLE [Concomitant]
     Active Substance: PANTOPRAZOLE

REACTIONS (2)
  - Therapy interrupted [None]
  - COVID-19 [None]

NARRATIVE: CASE EVENT DATE: 20200401
